FAERS Safety Report 20844376 (Version 3)
Quarter: 2022Q3

REPORT INFORMATION
  Report Type: Spontaneous
  Country: DK (occurrence: DK)
  Receive Date: 20220518
  Receipt Date: 20220728
  Transmission Date: 20221027
  Serious: Yes (Hospitalization, Congenital Anomaly, Other)
  Sender: FDA-Public Use
  Company Number: DK-PFIZER INC-202200708323

PATIENT
  Sex: Male
  Weight: 3.8 kg

DRUGS (2)
  1. INFLIXIMAB [Suspect]
     Active Substance: INFLIXIMAB
     Indication: Crohn^s disease
     Dosage: 100 MG, CYCLIC (8 WEEK)
     Route: 064
     Dates: start: 20171012
  2. INFLIXIMAB [Suspect]
     Active Substance: INFLIXIMAB
     Indication: Foetal exposure during pregnancy

REACTIONS (4)
  - Congenital anomaly [Unknown]
  - Neonatal respiratory distress syndrome [Unknown]
  - Newborn persistent pulmonary hypertension [Unknown]
  - Maternal exposure during pregnancy [Unknown]

NARRATIVE: CASE EVENT DATE: 20220411
